FAERS Safety Report 5781429-6 (Version None)
Quarter: 2008Q2

REPORT INFORMATION
  Report Type: 
  Country: None (occurrence: None)
  Receive Date: 20080623
  Receipt Date: 20080109
  Transmission Date: 20081010
  Serious: No
  Sender: FDA-Public Use
  Company Number: US-ASTRAZENECA-2007UW21236

PATIENT
  Age: 25 Year
  Sex: Female
  Weight: 38.6 kg

DRUGS (3)
  1. ENTOCORT EC [Suspect]
     Indication: CROHN'S DISEASE
     Route: 048
  2. NEXIUM [Concomitant]
  3. HYOSCYAMINE [Concomitant]

REACTIONS (4)
  - DIARRHOEA [None]
  - DYSGEUSIA [None]
  - MUSCLE SPASMS [None]
  - PHARMACEUTICAL PRODUCT COMPLAINT [None]
